FAERS Safety Report 9078831 (Version 1)
Quarter: 2013Q1

REPORT INFORMATION
  Report Type: Report from Study
  Country: US (occurrence: US)
  Receive Date: 20130130
  Receipt Date: 20130130
  Transmission Date: 20140127
  Serious: No
  Sender: FDA-Public Use
  Company Number: US-ABBOTT-12P-163-0970243-00

PATIENT
  Age: 62 Year
  Sex: Female

DRUGS (11)
  1. HUMIRA 40 MG/0.8 ML PEN [Suspect]
     Indication: CROHN^S DISEASE
     Dates: start: 20120607
  2. LEVOTHYROXINE [Concomitant]
     Indication: HYPOTHYROIDISM
     Dosage: 75MCG DAILY
  3. PANTOPRAZOLE [Concomitant]
     Indication: GASTROOESOPHAGEAL REFLUX DISEASE
  4. HYDROCODONE [Concomitant]
     Indication: CERVICAL VERTEBRAL FRACTURE
     Dosage: 5/500 3 DAILY
  5. METHOCARBAMOL [Concomitant]
     Indication: MUSCLE RELAXANT THERAPY
  6. ENALAPRIL/HCTZ [Concomitant]
     Indication: BLOOD PRESSURE
     Dosage: 5-12.5 DAILY
  7. COLACE [Concomitant]
     Indication: PRODUCT USED FOR UNKNOWN INDICATION
  8. MIRALAX [Concomitant]
     Indication: PRODUCT USED FOR UNKNOWN INDICATION
     Dosage: 1/2-2 PACKETS AS NEEDED
  9. ZOLPIDEM [Concomitant]
     Indication: INSOMNIA
     Dosage: 5-10MG AS NEEDED
  10. CITRACAL PLUS D [Concomitant]
     Indication: MINERAL SUPPLEMENTATION
  11. MULTIVITAMIN [Concomitant]
     Indication: VITAMIN SUPPLEMENTATION

REACTIONS (5)
  - Erythema [Recovered/Resolved]
  - Pain in extremity [Not Recovered/Not Resolved]
  - Erythema [Not Recovered/Not Resolved]
  - Arthralgia [Not Recovered/Not Resolved]
  - Rash [Not Recovered/Not Resolved]
